FAERS Safety Report 8560222-5 (Version None)
Quarter: 2012Q3

REPORT INFORMATION
  Report Type: 
  Country: None (occurrence: None)
  Receive Date: 20120802
  Receipt Date: 20120730
  Transmission Date: 20120928
  Serious: Yes (Hospitalization)
  Sender: FDA-Public Use
  Company Number: US-PFIZER INC-2012185045

PATIENT
  Sex: Female
  Weight: 81.633 kg

DRUGS (4)
  1. SEROQUEL [Concomitant]
     Dosage: 300 MG, DAILY
  2. CLONAZEPAM [Concomitant]
     Dosage: 0.5 MG, 2X/DAY
  3. LIPITOR [Concomitant]
     Indication: BLOOD CHOLESTEROL INCREASED
     Dosage: 20 MG, DAILY
     Route: 048
  4. EFFEXOR XR [Suspect]
     Indication: DEPRESSION
     Dosage: 150 MG, DAILY
     Route: 048
     Dates: start: 20021112, end: 20020101

REACTIONS (1)
  - MENTAL DISORDER [None]
